FAERS Safety Report 19047538 (Version 1)
Quarter: 2021Q1

REPORT INFORMATION
  Report Type: Spontaneous
  Country: US (occurrence: US)
  Receive Date: 20210323
  Receipt Date: 20210323
  Transmission Date: 20210420
  Serious: No
  Sender: FDA-Public Use
  Company Number: US-BEH-2021129507

PATIENT
  Sex: Male

DRUGS (6)
  1. DOK [Concomitant]
     Active Substance: DOCUSATE SODIUM
  2. TAMSULOSIN [Concomitant]
     Active Substance: TAMSULOSIN
  3. PRIVIGEN [Suspect]
     Active Substance: HUMAN IMMUNOGLOBULIN G
     Dosage: 30 MILLIGRAM (10GM + 20GM), QOW
     Route: 042
     Dates: start: 20201128
  4. BACLOFEN. [Concomitant]
     Active Substance: BACLOFEN
  5. MODAFINIL. [Concomitant]
     Active Substance: MODAFINIL
  6. ASPIRIN. [Concomitant]
     Active Substance: ASPIRIN

REACTIONS (1)
  - Hypersensitivity [Not Recovered/Not Resolved]
